FAERS Safety Report 5097969-1 (Version None)
Quarter: 2006Q3

REPORT INFORMATION
  Report Type: 
  Country: None (occurrence: None)
  Receive Date: 20060905
  Receipt Date: 20060823
  Transmission Date: 20061208
  Serious: Yes (Death)
  Sender: FDA-Public Use
  Company Number: GXKR2006CA05186

PATIENT
  Age: 13 Day
  Sex: Male

DRUGS (1)
  1. PARACETAMOL+CODEINE (NGX) (ACETAMINOPHEN (PARACETAMOL), CODEINE PHOSPH [Suspect]
     Dosage: VIA LACTATION

REACTIONS (7)
  - DEATH NEONATAL [None]
  - DRUG EXPOSURE VIA BREAST MILK [None]
  - DRUG TOXICITY [None]
  - FEEDING DISORDER NEONATAL [None]
  - LETHARGY [None]
  - SKIN DISCOLOURATION [None]
  - WEIGHT DECREASED [None]
